FAERS Safety Report 8826440 (Version 1)
Quarter: 2012Q4

REPORT INFORMATION
  Report Type: 
  Country: FI (occurrence: FI)
  Receive Date: 20121005
  Receipt Date: 20121005
  Transmission Date: 20130627
  Serious: Yes (Other)
  Sender: FDA-Public Use
  Company Number: PHHY2012FI077421

PATIENT
  Age: 74 Year
  Sex: Male

DRUGS (9)
  1. ONBREZ [Suspect]
     Dosage: 150 ug, QD
     Dates: start: 20120727
  2. FLIXOTIDE [Suspect]
     Dosage: 500 ug, BID
     Dates: start: 20120727
  3. SALBUTAMOL [Suspect]
     Dosage: 0.2 mg, UNK
     Dates: start: 20120727
  4. NITRO [Concomitant]
     Route: 060
  5. BISOPROACT [Concomitant]
     Indication: CORONARY ARTERY DISEASE
  6. ORMOX [Concomitant]
     Indication: CORONARY ARTERY DISEASE
  7. CARDACE [Concomitant]
     Indication: CORONARY ARTERY DISEASE
  8. SIMVASTATIN [Concomitant]
     Indication: CORONARY ARTERY DISEASE
  9. CYTOTOXIC DRUGS [Concomitant]
     Indication: CHRONIC LYMPHOCYTIC LEUKAEMIA

REACTIONS (2)
  - Anaemia [Unknown]
  - Angina pectoris [Unknown]
